FAERS Safety Report 5037696-X (Version None)
Quarter: 2006Q2

REPORT INFORMATION
  Report Type: 
  Country: None (occurrence: None)
  Receive Date: 20060627
  Receipt Date: 20060627
  Transmission Date: 20061013
  Serious: No
  Sender: FDA-Public Use
  Company Number: None

PATIENT
  Sex: Male
  Weight: 86.1834 kg

DRUGS (1)
  1. LEVITRA [Suspect]

REACTIONS (4)
  - ALTERED VISUAL DEPTH PERCEPTION [None]
  - ERECTILE DYSFUNCTION [None]
  - HEADACHE [None]
  - VISUAL DISTURBANCE [None]
